FAERS Safety Report 9274900 (Version 2)
Quarter: 2013Q3

REPORT INFORMATION
  Report Type: Spontaneous
  Country: CZ (occurrence: CZ)
  Receive Date: 20130507
  Receipt Date: 20130705
  Transmission Date: 20140515
  Serious: Yes (Death)
  Sender: FDA-Public Use
  Company Number: CZ-GENZYME-CAMP-1002905

PATIENT
  Sex: Male

DRUGS (21)
  1. CAMPATH [Suspect]
     Indication: X-LINKED LYMPHOPROLIFERATIVE SYNDROME
     Dosage: 5 MG, QD VIA CONTINUAL INFUSION FOR 2 HOURS
     Route: 065
     Dates: start: 20071128, end: 20071130
  2. FLUDARA [Suspect]
     Indication: X-LINKED LYMPHOPROLIFERATIVE SYNDROME
     Dosage: 18 MG, QD VIA CONTINUAL INFUSION FOR 30 MINUTES
     Route: 065
     Dates: start: 20071127, end: 20071201
  3. MELPHALAN [Suspect]
     Indication: X-LINKED LYMPHOPROLIFERATIVE SYNDROME
     Dosage: 84 MG, QD VIA CONTINUAL INFUSION FOR 30 MINUTES
     Route: 065
     Dates: start: 20071202
  4. HEPARIN [Concomitant]
     Indication: PRODUCT USED FOR UNKNOWN INDICATION
     Dosage: UNK
     Route: 065
  5. KYTRIL [Concomitant]
     Indication: PRODUCT USED FOR UNKNOWN INDICATION
     Dosage: UNK
     Route: 065
  6. NOVALGIN [Concomitant]
     Indication: PRODUCT USED FOR UNKNOWN INDICATION
     Dosage: UNK
     Route: 065
  7. DITHIADEN [Concomitant]
     Indication: PRODUCT USED FOR UNKNOWN INDICATION
     Dosage: UNK
     Route: 065
  8. MAXIPIME [Concomitant]
     Indication: PRODUCT USED FOR UNKNOWN INDICATION
     Dosage: UNK
     Route: 042
     Dates: start: 20071124, end: 20071212
  9. AMIKIN [Concomitant]
     Indication: PRODUCT USED FOR UNKNOWN INDICATION
     Dosage: UNK
     Route: 065
     Dates: end: 20071214
  10. KANAVIT [Concomitant]
     Indication: PRODUCT USED FOR UNKNOWN INDICATION
     Dosage: UNK
     Route: 065
  11. MILURIT [Concomitant]
     Indication: PRODUCT USED FOR UNKNOWN INDICATION
     Dosage: UNK
     Route: 065
  12. URSOFALK [Concomitant]
     Indication: PRODUCT USED FOR UNKNOWN INDICATION
     Dosage: UNK
     Route: 065
  13. DIAZEPAM [Concomitant]
     Indication: PRODUCT USED FOR UNKNOWN INDICATION
     Dosage: UNK
     Route: 065
  14. ENAP [Concomitant]
     Indication: PRODUCT USED FOR UNKNOWN INDICATION
     Dosage: UNK
     Route: 065
  15. FORTECORTIN [Concomitant]
     Indication: PRODUCT USED FOR UNKNOWN INDICATION
     Dosage: UNK
     Route: 065
  16. MERONEM [Concomitant]
     Indication: PRODUCT USED FOR UNKNOWN INDICATION
     Dosage: UNK
     Route: 065
     Dates: start: 20071212
  17. CIPRINOL [Concomitant]
     Indication: PRODUCT USED FOR UNKNOWN INDICATION
     Dosage: UNK
     Route: 065
     Dates: start: 20071214
  18. BUSILVEX [Concomitant]
     Indication: TRANSPLANT
     Dosage: 16 MG/KG, UNK
     Route: 065
     Dates: start: 20071126
  19. VP-16 [Concomitant]
     Indication: TRANSPLANT
     Dosage: UNK
     Route: 065
     Dates: start: 20071126
  20. CYTARABINE [Concomitant]
     Indication: TRANSPLANT
     Dosage: UNK
     Route: 065
     Dates: start: 20071126
  21. ATG [Concomitant]
     Indication: TRANSPLANT
     Dosage: UNK
     Route: 065
     Dates: start: 20071126

REACTIONS (4)
  - Multi-organ failure [Fatal]
  - C-reactive protein increased [Unknown]
  - Hypotension [Unknown]
  - Off label use [Unknown]
